FAERS Safety Report 25041957 (Version 3)
Quarter: 2025Q2

REPORT INFORMATION
  Report Type: Spontaneous
  Country: CN (occurrence: CN)
  Receive Date: 20250305
  Receipt Date: 20250513
  Transmission Date: 20250716
  Serious: No
  Sender: BLUEPRINT MEDICINES
  Company Number: CN-CSTONE PHARMACEUTICALS (SUZHOU) CO., LTD.-2025CN00083

PATIENT
  Age: 75 Year
  Sex: Male

DRUGS (6)
  1. AYVAKIT [Suspect]
     Active Substance: AVAPRITINIB
     Indication: Systemic mastocytosis
     Dosage: 100 MILLIGRAM, QD
     Dates: start: 20250116, end: 20250214
  2. AYVAKIT [Suspect]
     Active Substance: AVAPRITINIB
     Route: 048
  3. AYVAKIT [Suspect]
     Active Substance: AVAPRITINIB
     Route: 048
     Dates: start: 20250215
  4. AYVAKIT [Suspect]
     Active Substance: AVAPRITINIB
     Route: 048
     Dates: start: 202503
  5. AYVAKIT [Suspect]
     Active Substance: AVAPRITINIB
     Route: 048
  6. AYVAKIT [Suspect]
     Active Substance: AVAPRITINIB
     Route: 048

REACTIONS (3)
  - White blood cell count increased [Unknown]
  - White blood cell count decreased [Unknown]
  - Off label use [Unknown]

NARRATIVE: CASE EVENT DATE: 20250116
